FAERS Safety Report 9710662 (Version 1)
Quarter: 2013Q4

REPORT INFORMATION
  Report Type: Spontaneous
  Country: US (occurrence: US)
  Receive Date: 20131126
  Receipt Date: 20131126
  Transmission Date: 20140711
  Serious: No
  Sender: FDA-Public Use
  Company Number: US-BRISTOL-MYERS SQUIBB COMPANY-19006154

PATIENT
  Age: 75 Year
  Sex: Female

DRUGS (6)
  1. BYDUREON [Suspect]
     Route: 058
  2. VYTORIN [Concomitant]
     Dosage: 1DF=10-40MG
  3. METFORMIN [Concomitant]
     Dosage: FREQUENCY-ONE AND HALF DAY
  4. APROVEL [Concomitant]
  5. AMLODIPINE [Concomitant]
  6. ASPIRIN [Concomitant]

REACTIONS (2)
  - Constipation [Unknown]
  - Abdominal distension [Unknown]
